FAERS Safety Report 23635523 (Version 3)
Quarter: 2025Q3

REPORT INFORMATION
  Report Type: Report from Study
  Country: EU (occurrence: EU)
  Receive Date: 20240315
  Receipt Date: 20250812
  Transmission Date: 20251020
  Serious: Yes (Death, Other)
  Sender: CELLTRION
  Company Number: EU-CELLTRION INC.-2024HR006173

PATIENT

DRUGS (19)
  1. BEVACIZUMAB [Suspect]
     Active Substance: BEVACIZUMAB
     Indication: Non-small cell lung cancer
     Dosage: 1200 MG, EVERY 2 WEEKS
     Route: 042
     Dates: start: 20230414
  2. ATEZOLIZUMAB [Suspect]
     Active Substance: ATEZOLIZUMAB
     Indication: Non-small cell lung cancer
     Route: 042
     Dates: start: 20230414
  3. INDOMETHACIN [Concomitant]
     Active Substance: INDOMETHACIN
  4. INDOMETHACIN [Concomitant]
     Active Substance: INDOMETHACIN
     Route: 065
  5. INDOMETHACIN [Concomitant]
     Active Substance: INDOMETHACIN
  6. ALLOPURINOL [Concomitant]
     Active Substance: ALLOPURINOL
  7. ALLOPURINOL [Concomitant]
     Active Substance: ALLOPURINOL
  8. ALLOPURINOL [Concomitant]
     Active Substance: ALLOPURINOL
  9. HYDROCORTISONE [Concomitant]
     Active Substance: HYDROCORTISONE
     Dates: start: 20231201
  10. HYDROCORTISONE [Concomitant]
     Active Substance: HYDROCORTISONE
  11. HYDROCORTISONE [Concomitant]
     Active Substance: HYDROCORTISONE
  12. INSULIN DEGLUDEC [Concomitant]
     Active Substance: INSULIN DEGLUDEC
     Dates: start: 20231204
  13. INSULIN DEGLUDEC [Concomitant]
     Active Substance: INSULIN DEGLUDEC
  14. INSULIN DEGLUDEC [Concomitant]
     Active Substance: INSULIN DEGLUDEC
  15. LEVOTHYROXINE [Concomitant]
     Active Substance: LEVOTHYROXINE
     Dates: start: 20240116
  16. LEVOTHYROXINE [Concomitant]
     Active Substance: LEVOTHYROXINE
  17. LEVOTHYROXINE [Concomitant]
     Active Substance: LEVOTHYROXINE
  18. METFORMIN [Concomitant]
     Active Substance: METFORMIN HYDROCHLORIDE
  19. PERINDOPRIL [Concomitant]
     Active Substance: PERINDOPRIL

REACTIONS (2)
  - General physical health deterioration [Fatal]
  - Hypothyroidism [Recovered/Resolved]

NARRATIVE: CASE EVENT DATE: 20240116
